FAERS Safety Report 9405117 (Version 1)
Quarter: 2013Q3

REPORT INFORMATION
  Report Type: Spontaneous
  Country: CA (occurrence: CA)
  Receive Date: 20130717
  Receipt Date: 20130717
  Transmission Date: 20140515
  Serious: No
  Sender: FDA-Public Use
  Company Number: CA-TEVA-416628USA

PATIENT
  Age: 18 Year
  Sex: Female

DRUGS (2)
  1. PLAN B ONE-STEP [Suspect]
     Indication: CONTRACEPTION
     Route: 048
     Dates: start: 20130527, end: 20130527
  2. PLAN B ONE-STEP [Suspect]
     Route: 048
     Dates: start: 20130616, end: 20130616

REACTIONS (5)
  - Metrorrhagia [Recovered/Resolved]
  - Menstruation delayed [Not Recovered/Not Resolved]
  - Abdominal pain [Not Recovered/Not Resolved]
  - Breast tenderness [Not Recovered/Not Resolved]
  - Stress [Not Recovered/Not Resolved]
